FAERS Safety Report 12311569 (Version 3)
Quarter: 2016Q2

REPORT INFORMATION
  Report Type: Spontaneous
  Country: US (occurrence: US)
  Receive Date: 20160427
  Receipt Date: 20160614
  Transmission Date: 20160815
  Serious: Yes (Other)
  Sender: FDA-Public Use
  Company Number: US-PFIZER INC-2016155175

PATIENT
  Age: 42 Year
  Sex: Male

DRUGS (9)
  1. ZEGERID [Concomitant]
     Active Substance: OMEPRAZOLE\SODIUM BICARBONATE
     Indication: GASTROOESOPHAGEAL REFLUX DISEASE
     Dosage: 20 MG, 2X/DAY
     Dates: start: 2012
  2. LIPITOR [Suspect]
     Active Substance: ATORVASTATIN CALCIUM
     Indication: BLOOD CHOLESTEROL INCREASED
     Dosage: 10 MG, 1X/DAY
     Dates: start: 1995
  3. ZEGERID [Concomitant]
     Active Substance: OMEPRAZOLE\SODIUM BICARBONATE
     Dosage: UNK, AS NEEDED
     Dates: start: 2012
  4. OMEPRAZOLE. [Concomitant]
     Active Substance: OMEPRAZOLE
     Indication: GASTROOESOPHAGEAL REFLUX DISEASE
     Dosage: 40 MG, (1 AM, 40 MG 1 PM, 2 DAILY)
     Dates: start: 200811
  5. OMEPRAZOLE. [Concomitant]
     Active Substance: OMEPRAZOLE
     Indication: REFLUX LARYNGITIS
  6. D-3 [Concomitant]
     Active Substance: CHOLECALCIFEROL
     Dosage: UNK
     Dates: start: 2009
  7. ENBREL [Concomitant]
     Active Substance: ETANERCEPT
     Indication: ARTHRITIS
     Dosage: 50 MG, UNK
     Dates: start: 201310
  8. FISH OIL [Concomitant]
     Active Substance: FISH OIL
     Dosage: UNK
     Dates: start: 2007
  9. GABAPENTIN. [Concomitant]
     Active Substance: GABAPENTIN
     Indication: ARTHRITIS
     Dosage: 300 MG (300 MG 5 OR 6 DAILY)
     Dates: start: 1999

REACTIONS (5)
  - Osteoarthritis [Not Recovered/Not Resolved]
  - Fibromyalgia [Not Recovered/Not Resolved]
  - Limb discomfort [Unknown]
  - Rheumatoid arthritis [Not Recovered/Not Resolved]
  - Abasia [Unknown]

NARRATIVE: CASE EVENT DATE: 1995
